FAERS Safety Report 9507934 (Version 1)
Quarter: 2013Q3

REPORT INFORMATION
  Report Type: Spontaneous
  Country: MD (occurrence: MD)
  Receive Date: 20130909
  Receipt Date: 20130909
  Transmission Date: 20140515
  Serious: Yes (Other)
  Sender: FDA-Public Use
  Company Number: MD-GE HEALTHCARE MEDICAL DIAGNOSTICS-VISP-PR-1308S-0796

PATIENT
  Age: 61 Year
  Sex: Male
  Weight: 63 kg

DRUGS (3)
  1. VISIPAQUE [Suspect]
     Indication: RENAL CELL CARCINOMA
     Route: 042
     Dates: start: 20130822, end: 20130822
  2. VISIPAQUE [Suspect]
     Indication: DIAGNOSTIC PROCEDURE
  3. SODIUM CHLORIDE [Concomitant]
     Dates: start: 20130822, end: 20130822

REACTIONS (1)
  - Body temperature increased [Recovered/Resolved]
